FAERS Safety Report 6466879-7 (Version None)
Quarter: 2009Q4

REPORT INFORMATION
  Report Type: 
  Country: None (occurrence: None)
  Receive Date: 20091127
  Receipt Date: 20091116
  Transmission Date: 20100525
  Serious: Yes (Hospitalization, Other)
  Sender: FDA-Public Use
  Company Number: 2009AC000415

PATIENT
  Age: 59 Year
  Sex: Female

DRUGS (6)
  1. DIGOXIN [Suspect]
     Dosage: PO
     Route: 048
     Dates: start: 19760101
  2. TOPROL-XL [Concomitant]
  3. AMIODARONE HCL [Concomitant]
  4. LASIX [Concomitant]
  5. COUMADIN [Concomitant]
  6. CELEXA [Concomitant]

REACTIONS (15)
  - ATRIAL FIBRILLATION [None]
  - CARDIAC DISORDER [None]
  - CARDIAC FAILURE CONGESTIVE [None]
  - CARDIAC FLUTTER [None]
  - CARDIAC VALVE DISEASE [None]
  - ECONOMIC PROBLEM [None]
  - HYPOTENSION [None]
  - LYMPHADENOPATHY [None]
  - LYMPHADENOPATHY MEDIASTINAL [None]
  - MITRAL VALVE STENOSIS [None]
  - MULTIPLE INJURIES [None]
  - OBESITY [None]
  - PLEURAL EFFUSION [None]
  - SURGERY [None]
  - TREATMENT NONCOMPLIANCE [None]
